FAERS Safety Report 17605840 (Version 2)
Quarter: 2020Q2

REPORT INFORMATION
  Report Type: Spontaneous
  Country: US (occurrence: US)
  Receive Date: 20200331
  Receipt Date: 20200402
  Transmission Date: 20200713
  Serious: No
  Sender: FDA-Public Use
  Company Number: US-PFIZER INC-2020128342

PATIENT
  Age: 83 Year
  Sex: Female
  Weight: 52.16 kg

DRUGS (3)
  1. IBRANCE [Suspect]
     Active Substance: PALBOCICLIB
     Indication: BREAST CANCER METASTATIC
     Dosage: 100 MG, FOR 21 DAYS THEN 7 DAYS OFF
     Route: 048
     Dates: start: 202002, end: 202003
  2. FASLODEX [Concomitant]
     Active Substance: FULVESTRANT
     Dosage: UNK, MONTHLY (ONCE A MONTH)
  3. FASLODEX [Concomitant]
     Active Substance: FULVESTRANT
     Dosage: UNK (EVERY 2 WEEKS FOR A MONTH)

REACTIONS (6)
  - Oral discomfort [Recovered/Resolved]
  - Gingival pain [Recovered/Resolved]
  - Lip swelling [Recovered/Resolved]
  - Stomatitis [Recovered/Resolved]
  - Oral mucosal blistering [Recovered/Resolved]
  - Toothache [Recovered/Resolved]

NARRATIVE: CASE EVENT DATE: 202002
